FAERS Safety Report 7386890-1 (Version None)
Quarter: 2011Q1

REPORT INFORMATION
  Report Type: 
  Country: None (occurrence: None)
  Receive Date: 20110331
  Receipt Date: 20110322
  Transmission Date: 20110831
  Serious: Yes (Hospitalization, Other)
  Sender: FDA-Public Use
  Company Number: US-PFIZER INC-US-WYE-H05006808

PATIENT
  Sex: Female
  Weight: 95 kg

DRUGS (1)
  1. PREMPRO [Suspect]
     Indication: HORMONE REPLACEMENT THERAPY
     Dosage: 0.3MG/1.5MG
     Route: 048
     Dates: start: 20031201, end: 20060701

REACTIONS (1)
  - BREAST CANCER FEMALE [None]
